FAERS Safety Report 5836902-9 (Version None)
Quarter: 2008Q3

REPORT INFORMATION
  Report Type: 
  Country: None (occurrence: None)
  Receive Date: 20080805
  Receipt Date: 20080725
  Transmission Date: 20090109
  Serious: Yes (Death)
  Sender: FDA-Public Use
  Company Number: 013699

PATIENT
  Age: 64 Year
  Sex: Female

DRUGS (14)
  1. PRIALT [Suspect]
     Indication: PAIN
     Dosage: 0.341 UG, ONCE/HOUR, INTRATHECAL 0.376 UG, ONCE/HOUR, INTRATHECAL
     Route: 037
     Dates: end: 20071001
  2. PRIALT [Suspect]
     Indication: PAIN
     Dosage: 0.341 UG, ONCE/HOUR, INTRATHECAL 0.376 UG, ONCE/HOUR, INTRATHECAL
     Route: 037
     Dates: start: 20071001, end: 20071129
  3. HYDROMORPHONE HCL [Suspect]
     Indication: PAIN
     Dosage: 0.376 MG, ONCE/HOUR, INTRATHECAL
     Route: 037
  4. MS CONTIN [Concomitant]
  5. NITROQUICK (GLYCERYL TRINITRATE) [Concomitant]
  6. CARDIZEM [Concomitant]
  7. HEPARIN [Concomitant]
  8. AMIODARONE HCL [Concomitant]
  9. PLAVIX [Concomitant]
  10. POTASSIUM CHLORIDE [Concomitant]
  11. ALBUTEROL /00139501/ (SALBUTAMOL) [Concomitant]
  12. ADVAIR DISKUS 100/50 [Concomitant]
  13. LASIX [Concomitant]
  14. ISOSORBIDE (ISOSORBIDE) [Concomitant]

REACTIONS (2)
  - CARDIAC ARREST [None]
  - UNRESPONSIVE TO STIMULI [None]
